FAERS Safety Report 8771457 (Version 1)
Quarter: 2012Q4

REPORT INFORMATION
  Report Type: 
  Country: CA (occurrence: CA)
  Receive Date: 20120905
  Receipt Date: 20120905
  Transmission Date: 20130627
  Serious: Yes (Hospitalization)
  Sender: FDA-Public Use
  Company Number: CA-B.I. PHARMACEUTICALS,INC./RIDGEFIELD-2012-CN-01811CN

PATIENT
  Age: 60 Year
  Sex: Female
  Weight: 116 kg

DRUGS (19)
  1. MICARDIS [Suspect]
     Dosage: 80 mg
     Dates: start: 20090914
  2. DALCETRAPIB (BLIND) [Concomitant]
     Indication: ARTERIOSCLEROSIS
     Dosage: once daily
     Route: 048
     Dates: start: 20110615
  3. NAPROXEN [Concomitant]
     Dosage: 500 mg
     Dates: start: 20050717
  4. NITROLINGUAL [Concomitant]
     Dosage: 0.4 mg
     Route: 060
     Dates: start: 20081016
  5. ASPIRIN [Concomitant]
     Dosage: 80 mg
     Dates: start: 20081017
  6. ASPIRIN [Concomitant]
     Dosage: 80 mg
     Dates: start: 20111010
  7. CLOPIDOGREL [Concomitant]
     Dosage: 75 mg
     Dates: start: 20081017
  8. CLOPIDOGREL [Concomitant]
     Dosage: 75 mg
     Dates: start: 20111010
  9. BISOPROLOL [Concomitant]
     Dosage: 10 mg
     Dates: start: 20101215
  10. SECARIS [Concomitant]
     Dates: start: 20110426
  11. ATORVASTATIN [Concomitant]
     Dosage: 80 mg
     Dates: start: 20110602
  12. AMLODIPINE [Concomitant]
     Dosage: 7.5 mg
     Dates: start: 20110616
  13. FUROSEMIDE [Concomitant]
     Dosage: 40 mg
     Dates: start: 20110616
  14. CPAP [Concomitant]
     Dates: start: 200406
  15. NASONEX [Concomitant]
     Dosage: 50 mcg
     Dates: start: 201006
  16. PULMICORT [Concomitant]
     Dosage: 200 mcg
     Dates: start: 200806
  17. BRICANYL [Concomitant]
     Dosage: 500 mcg
     Dates: start: 200406
  18. ZOFRAN [Concomitant]
     Dosage: 4 mg
     Dates: start: 20111005, end: 20111005
  19. PREDNISONE [Concomitant]
     Dosage: 50 mg
     Dates: start: 20111021, end: 20111022

REACTIONS (4)
  - Ill-defined disorder [Not Recovered/Not Resolved]
  - Benign salivary gland neoplasm [Recovered/Resolved]
  - Angioedema [Recovered/Resolved]
  - Nodule [Unknown]
